FAERS Safety Report 12328694 (Version 1)
Quarter: 2016Q2

REPORT INFORMATION
  Report Type: Spontaneous
  Country: US (occurrence: US)
  Receive Date: 20160503
  Receipt Date: 20160503
  Transmission Date: 20160815
  Serious: No
  Sender: FDA-Public Use
  Company Number: US-BEH-2015050208

PATIENT
  Sex: Female
  Weight: 66 kg

DRUGS (19)
  1. ALLEGRA [Concomitant]
     Active Substance: FEXOFENADINE HYDROCHLORIDE
  2. CLONAZEPAM. [Concomitant]
     Active Substance: CLONAZEPAM
  3. OTHER LOCAL ANESTHETICS [Concomitant]
  4. ALBUTEROL. [Concomitant]
     Active Substance: ALBUTEROL
  5. VENTOLIN [Concomitant]
     Active Substance: ALBUTEROL SULFATE
  6. METOPROLOL. [Concomitant]
     Active Substance: METOPROLOL
  7. VITAMIN C 500 [Concomitant]
  8. FLUTICASONE PROPIONATE. [Concomitant]
     Active Substance: FLUTICASONE PROPIONATE
  9. HIZENTRA [Suspect]
     Active Substance: HUMAN IMMUNOGLOBULIN G
     Indication: IMMUNODEFICIENCY COMMON VARIABLE
     Dosage: 4 G
     Route: 058
     Dates: start: 201102
  10. VITAMIN E 400 [Concomitant]
  11. ATORVASTATIN [Concomitant]
     Active Substance: ATORVASTATIN
  12. EPIPEN [Concomitant]
     Active Substance: EPINEPHRINE
     Dosage: AUTO-INJECTOR
  13. AZITHROMYCIN ANHYDROUS. [Concomitant]
     Active Substance: AZITHROMYCIN ANHYDROUS
  14. ACIDOPHILUS PROBIOTIC [Concomitant]
  15. DIPHENHYDRAMINE. [Concomitant]
     Active Substance: DIPHENHYDRAMINE
  16. LIDOCAINE. [Concomitant]
     Active Substance: LIDOCAINE
  17. PREDNISONE. [Concomitant]
     Active Substance: PREDNISONE
  18. ASPIRIN 81 [Concomitant]
     Active Substance: ASPIRIN
  19. ANTIBIOTICS [Concomitant]
     Active Substance: UNSPECIFIED INGREDIENT

REACTIONS (1)
  - Diarrhoea [Recovered/Resolved]
